FAERS Safety Report 11212761 (Version 2)
Quarter: 2015Q3

REPORT INFORMATION
  Report Type: Spontaneous
  Country: GB (occurrence: GB)
  Receive Date: 20150623
  Receipt Date: 20150703
  Transmission Date: 20151125
  Serious: Yes (Other)
  Sender: FDA-Public Use
  Company Number: GB-009507513-1506GBR008877

PATIENT
  Age: 62 Year
  Sex: Male
  Weight: 94 kg

DRUGS (3)
  1. FINASTERIDE. [Suspect]
     Active Substance: FINASTERIDE
     Dosage: UNK
     Dates: start: 20150221
  2. FINASTERIDE. [Suspect]
     Active Substance: FINASTERIDE
     Dosage: UNK
     Route: 048
     Dates: start: 20150602
  3. TAMSULOSIN HYDROCHLORIDE. [Concomitant]
     Active Substance: TAMSULOSIN HYDROCHLORIDE
     Dates: start: 20150221

REACTIONS (5)
  - Penile swelling [Recovered/Resolved]
  - Skin exfoliation [Unknown]
  - Face oedema [Recovered/Resolved]
  - Rash macular [Unknown]
  - Blister [Unknown]

NARRATIVE: CASE EVENT DATE: 20150602
